FAERS Safety Report 21071008 (Version 1)
Quarter: 2022Q3

REPORT INFORMATION
  Report Type: Spontaneous
  Country: JP (occurrence: JP)
  Receive Date: 20220712
  Receipt Date: 20220712
  Transmission Date: 20221026
  Serious: Yes (Hospitalization, Other)
  Sender: FDA-Public Use
  Company Number: JP-EPIHEALTH-2022-JP-000270

PATIENT
  Age: 48 Year
  Sex: Male

DRUGS (1)
  1. MINOCYCLINE HYDROCHLORIDE [Suspect]
     Active Substance: MINOCYCLINE HYDROCHLORIDE
     Indication: Streptococcal infection

REACTIONS (4)
  - Hyperthyroidism [Unknown]
  - Thyroiditis [Unknown]
  - Goitre [Unknown]
  - Tissue discolouration [Unknown]
